FAERS Safety Report 7577076-6 (Version None)
Quarter: 2011Q2

REPORT INFORMATION
  Report Type: 
  Country: None (occurrence: None)
  Receive Date: 20110628
  Receipt Date: 20110601
  Transmission Date: 20111010
  Serious: Yes (Hospitalization, Other)
  Sender: FDA-Public Use
  Company Number: US-BAYER-2011-024440

PATIENT
  Age: 49 Year
  Sex: Female
  Weight: 63.492 kg

DRUGS (6)
  1. DIOVAN [Concomitant]
  2. NEXIUM [Concomitant]
  3. ALLEGRA [Concomitant]
  4. CLONIDINE [Concomitant]
  5. PREDNISONE [Concomitant]
  6. YASMIN [Suspect]
     Indication: CONTRACEPTION
     Dosage: UNK
     Route: 048
     Dates: start: 20030101, end: 20050601

REACTIONS (2)
  - PULMONARY EMBOLISM [None]
  - FEAR [None]
